FAERS Safety Report 15934563 (Version 3)
Quarter: 2019Q1

REPORT INFORMATION
  Report Type: Spontaneous
  Country: US (occurrence: US)
  Receive Date: 20190207
  Receipt Date: 20190304
  Transmission Date: 20190417
  Serious: Yes (Other)
  Sender: FDA-Public Use
  Company Number: US-ASTRAZENECA-2018SF15078

PATIENT
  Age: 23338 Day
  Sex: Female

DRUGS (40)
  1. PROTONIX [Suspect]
     Active Substance: PANTOPRAZOLE SODIUM
     Route: 065
     Dates: start: 201606, end: 201709
  2. TETRACYCLINE [Concomitant]
     Active Substance: TETRACYCLINE
  3. MELOXICAM. [Concomitant]
     Active Substance: MELOXICAM
  4. BENZONATATE. [Concomitant]
     Active Substance: BENZONATATE
  5. PENICILLIN VK [Concomitant]
     Active Substance: PENICILLIN V POTASSIUM
  6. NEXIUM [Suspect]
     Active Substance: ESOMEPRAZOLE MAGNESIUM
     Route: 048
     Dates: start: 201606, end: 201709
  7. PRILOSEC [Suspect]
     Active Substance: OMEPRAZOLE MAGNESIUM
     Route: 048
     Dates: start: 201606, end: 201709
  8. MECLIZINE [Concomitant]
     Active Substance: MECLIZINE HYDROCHLORIDE
  9. GLIPIZIDE. [Concomitant]
     Active Substance: GLIPIZIDE
  10. METRONIDAZOLE. [Concomitant]
     Active Substance: METRONIDAZOLE
  11. PRAVACHOL [Concomitant]
     Active Substance: PRAVASTATIN SODIUM
  12. PRILOSEC [Suspect]
     Active Substance: OMEPRAZOLE MAGNESIUM
     Dosage: OMEPRAZOLE
     Route: 048
     Dates: start: 20080807
  13. METOPROLOL TARTRATE. [Concomitant]
     Active Substance: METOPROLOL TARTRATE
  14. CIPROFLOXACIN. [Concomitant]
     Active Substance: CIPROFLOXACIN
  15. DEXILANT [Concomitant]
     Active Substance: DEXLANSOPRAZOLE
     Route: 048
     Dates: start: 20130405
  16. NASONEX [Concomitant]
     Active Substance: MOMETASONE FUROATE
  17. BYETTA [Concomitant]
     Active Substance: EXENATIDE
  18. LORATADINE. [Concomitant]
     Active Substance: LORATADINE
  19. ACTOS [Concomitant]
     Active Substance: PIOGLITAZONE HYDROCHLORIDE
  20. NEXIUM [Suspect]
     Active Substance: ESOMEPRAZOLE MAGNESIUM
     Route: 048
     Dates: start: 20130416
  21. PRILOSEC OTC [Suspect]
     Active Substance: OMEPRAZOLE MAGNESIUM
     Route: 048
     Dates: start: 20050101, end: 20171201
  22. ATORVASTATIN [Concomitant]
     Active Substance: ATORVASTATIN
  23. ALPRAZOLAM. [Concomitant]
     Active Substance: ALPRAZOLAM
  24. LEVAQUIN [Concomitant]
     Active Substance: LEVOFLOXACIN
  25. PRILOSEC OTC [Suspect]
     Active Substance: OMEPRAZOLE MAGNESIUM
     Route: 048
     Dates: start: 201606, end: 201709
  26. PREVACID [Suspect]
     Active Substance: LANSOPRAZOLE
     Route: 065
     Dates: start: 201606, end: 201709
  27. PROTONIX [Suspect]
     Active Substance: PANTOPRAZOLE SODIUM
     Route: 065
     Dates: start: 201606, end: 201709
  28. METHYLPREDNISOLONE. [Concomitant]
     Active Substance: METHYLPREDNISOLONE
  29. LORAZEPAM. [Concomitant]
     Active Substance: LORAZEPAM
  30. LISINOPRIL. [Concomitant]
     Active Substance: LISINOPRIL
  31. JANUVIA [Concomitant]
     Active Substance: SITAGLIPTIN PHOSPHATE
  32. KOMBIGLYZE XR [Concomitant]
     Active Substance: METFORMIN HYDROCHLORIDE\SAXAGLIPTIN HYDROCHLORIDE
  33. PRILOSEC [Suspect]
     Active Substance: OMEPRAZOLE MAGNESIUM
     Route: 048
     Dates: start: 20050101, end: 20171201
  34. PROTONIX [Suspect]
     Active Substance: PANTOPRAZOLE SODIUM
     Route: 042
     Dates: start: 20170606
  35. PAROXETINE. [Concomitant]
     Active Substance: PAROXETINE
  36. PRILOSEC [Suspect]
     Active Substance: OMEPRAZOLE MAGNESIUM
     Dosage: OMEPRAZOLE
     Route: 048
     Dates: start: 20130313
  37. METFORMIN [Concomitant]
     Active Substance: METFORMIN HYDROCHLORIDE
  38. CLOPIDOGREL [Concomitant]
     Active Substance: CLOPIDOGREL BISULFATE
  39. AZITHROMYCIN ANHYDROUS. [Concomitant]
     Active Substance: AZITHROMYCIN ANHYDROUS
  40. LYRICA [Concomitant]
     Active Substance: PREGABALIN

REACTIONS (4)
  - Renal failure [Unknown]
  - Renal injury [Unknown]
  - Acute kidney injury [Unknown]
  - Chronic kidney disease [Unknown]

NARRATIVE: CASE EVENT DATE: 20160617
